FAERS Safety Report 5816316-8 (Version None)
Quarter: 2008Q3

REPORT INFORMATION
  Report Type: 
  Country: None (occurrence: None)
  Receive Date: 20080717
  Receipt Date: 20080717
  Transmission Date: 20090109
  Serious: Yes (Hospitalization)
  Sender: FDA-Public Use
  Company Number: None

PATIENT
  Age: 47 Year
  Sex: Female
  Weight: 95.2554 kg

DRUGS (2)
  1. VANCOMYCIN [Suspect]
     Indication: OSTEOMYELITIS
     Dosage: 105 GM Q12 HRS IV
     Route: 042
     Dates: start: 20080618, end: 20080703
  2. ZOSYN [Suspect]
     Indication: OSTEOMYELITIS
     Dosage: 4.5 MG IV Q 8HRS
     Route: 042
     Dates: start: 20080619, end: 20080703

REACTIONS (1)
  - RENAL FAILURE ACUTE [None]
